FAERS Safety Report 13677143 (Version 1)
Quarter: 2017Q2

REPORT INFORMATION
  Report Type: Spontaneous
  Country: US (occurrence: US)
  Receive Date: 20170621
  Receipt Date: 20170621
  Transmission Date: 20170830
  Serious: Yes (Other)
  Sender: FDA-Public Use
  Company Number: None

PATIENT
  Age: 36 Year
  Sex: Female
  Weight: 108.96 kg

DRUGS (5)
  1. PRENATAL VITAMIN [Concomitant]
     Active Substance: VITAMINS
  2. NSAIDS [Concomitant]
     Active Substance: UNSPECIFIED INGREDIENT
  3. ADDERALL XR [Concomitant]
     Active Substance: AMPHETAMINE ASPARTATE\AMPHETAMINE SULFATE\DEXTROAMPHETAMINE SACCHARATE\DEXTROAMPHETAMINE SULFATE
  4. MIRENA [Suspect]
     Active Substance: LEVONORGESTREL
     Dates: start: 20150205, end: 20170208
  5. ALLERGY MEDICATION [Concomitant]
     Active Substance: DIPHENHYDRAMINE HYDROCHLORIDE

REACTIONS (5)
  - Abortion spontaneous [None]
  - Pregnancy with contraceptive device [None]
  - Vaginal haemorrhage [None]
  - Abdominal pain [None]
  - Mental disorder [None]

NARRATIVE: CASE EVENT DATE: 20161114
